FAERS Safety Report 14187711 (Version 1)
Quarter: 2017Q4

REPORT INFORMATION
  Report Type: Spontaneous
  Country: US (occurrence: None)
  Receive Date: 20171114
  Receipt Date: 20171114
  Transmission Date: 20180321
  Serious: Yes (Hospitalization)
  Sender: FDA-Public Use
  Company Number: None

PATIENT
  Age: 74 Year
  Sex: Female
  Weight: 51.26 kg

DRUGS (6)
  1. CISPLATINUM [Concomitant]
     Active Substance: CISPLATIN
  2. GEMCITABINE [Concomitant]
     Active Substance: GEMCITABINE\GEMCITABINE HYDROCHLORIDE
  3. NEULASTA [Suspect]
     Active Substance: PEGFILGRASTIM
     Indication: WHITE BLOOD CELL DISORDER
     Dates: start: 20171004
  4. PREMARIN [Concomitant]
     Active Substance: ESTROGENS, CONJUGATED
  5. VITAMIN D [Concomitant]
     Active Substance: CHOLECALCIFEROL
  6. LIPITOR [Concomitant]
     Active Substance: ATORVASTATIN CALCIUM

REACTIONS (3)
  - Neck pain [None]
  - Decreased activity [None]
  - Groin pain [None]

NARRATIVE: CASE EVENT DATE: 20171004
